FAERS Safety Report 8532323-9 (Version None)
Quarter: 2012Q3

REPORT INFORMATION
  Report Type: 
  Country: None (occurrence: None)
  Receive Date: 20120724
  Receipt Date: 20120713
  Transmission Date: 20120928
  Serious: Yes (Hospitalization)
  Sender: FDA-Public Use
  Company Number: US-BIOGENIDEC-2012BI004157

PATIENT
  Age: 46 Year
  Sex: Male

DRUGS (3)
  1. TYSABRI [Suspect]
     Indication: MULTIPLE SCLEROSIS
     Route: 042
     Dates: start: 20050120, end: 20050120
  2. TYSABRI [Suspect]
     Route: 042
     Dates: start: 20080818, end: 20101014
  3. TYSABRI [Suspect]
     Route: 042
     Dates: start: 20110526

REACTIONS (1)
  - GAIT DISTURBANCE [None]
